FAERS Safety Report 6687375-8 (Version None)
Quarter: 2010Q2

REPORT INFORMATION
  Report Type: 
  Country: None (occurrence: None)
  Receive Date: 20100416
  Receipt Date: 20100416
  Transmission Date: 20101027
  Serious: Yes (Hospitalization)
  Sender: FDA-Public Use
  Company Number: None

PATIENT
  Sex: Male
  Weight: 67.9035 kg

DRUGS (4)
  1. AVASTIN [Suspect]
     Indication: ADENOCARCINOMA
     Dosage: 15 MG/KG (1040 MG ONCE EVERY 21 DAYS INTRAVENOUS DRIP
     Route: 041
     Dates: start: 20100324, end: 20100324
  2. AVASTIN [Suspect]
     Indication: NON-SMALL CELL LUNG CANCER
     Dosage: 15 MG/KG (1040 MG ONCE EVERY 21 DAYS INTRAVENOUS DRIP
     Route: 041
     Dates: start: 20100324, end: 20100324
  3. ERLOTINIB HYDROCHLORIDE [Suspect]
     Indication: ADENOCARCINOMA
     Dosage: 150 MG ONCE DAILY ORAL
     Route: 048
     Dates: start: 20100324, end: 20100409
  4. ERLOTINIB HYDROCHLORIDE [Suspect]
     Indication: NON-SMALL CELL LUNG CANCER
     Dosage: 150 MG ONCE DAILY ORAL
     Route: 048
     Dates: start: 20100324, end: 20100409

REACTIONS (4)
  - ILEUS [None]
  - INTESTINAL PERFORATION [None]
  - INTESTINAL ULCER PERFORATION [None]
  - LARGE INTESTINAL ULCER [None]
